FAERS Safety Report 6805527-0 (Version None)
Quarter: 2010Q2

REPORT INFORMATION
  Report Type: 
  Country: None (occurrence: None)
  Receive Date: 20100628
  Receipt Date: 20071116
  Transmission Date: 20101027
  Serious: No
  Sender: FDA-Public Use
  Company Number: US-PFIZER INC-2007100124

PATIENT

DRUGS (2)
  1. GEODON [Suspect]
     Route: 048
     Dates: start: 20060101
  2. LAMICTAL [Concomitant]

REACTIONS (2)
  - ABDOMINAL PAIN [None]
  - GASTROINTESTINAL MOTILITY DISORDER [None]
